FAERS Safety Report 9785725 (Version 2)
Quarter: 2014Q1

REPORT INFORMATION
  Report Type: Spontaneous
  Country: PL (occurrence: None)
  Receive Date: 20131224
  Receipt Date: 20140103
  Transmission Date: 20141002
  Serious: Yes (Other)
  Sender: FDA-Public Use
  Company Number: AUR-APL-2013-10597

PATIENT
  Age: 33 Year
  Sex: Female

DRUGS (2)
  1. LEVETIRACETAM [Suspect]
     Indication: EPILEPSY
     Dosage: UNKNOWN
  2. VALPROIC ACID [Suspect]
     Indication: EPILEPSY
     Dosage: UNKNOWN

REACTIONS (2)
  - Neurosis [None]
  - Disorientation [None]
